FAERS Safety Report 12587264 (Version 2)
Quarter: 2017Q4

REPORT INFORMATION
  Report Type: Report from Study
  Country: DE (occurrence: DE)
  Receive Date: 20160725
  Receipt Date: 20171007
  Transmission Date: 20180320
  Serious: Yes (Disabling, Other)
  Sender: FDA-Public Use
  Company Number: DE-ROCHE-1799107

PATIENT
  Weight: .42 kg

DRUGS (4)
  1. OXYBUPROCAINE [Concomitant]
     Active Substance: BENOXINATE
  2. OCTENIDINE [Concomitant]
     Active Substance: OCTENIDINE
  3. PROPOFOL. [Concomitant]
     Active Substance: PROPOFOL
     Indication: SEDATION
  4. BEVACIZUMAB. [Suspect]
     Active Substance: BEVACIZUMAB
     Indication: RETINOPATHY OF PREMATURITY
     Route: 050

REACTIONS (2)
  - Corneal opacity [Not Recovered/Not Resolved]
  - Keratitis [Not Recovered/Not Resolved]
